FAERS Safety Report 23761776 (Version 1)
Quarter: 2024Q2

REPORT INFORMATION
  Report Type: Spontaneous
  Country: JP (occurrence: JP)
  Receive Date: 20240419
  Receipt Date: 20240419
  Transmission Date: 20240715
  Serious: Yes (Other)
  Sender: FDA-Public Use
  Company Number: JP-AMGEN-JPNSP2024071303

PATIENT
  Sex: Male

DRUGS (1)
  1. EVENITY [Suspect]
     Active Substance: ROMOSOZUMAB-AQQG
     Indication: Osteoporosis
     Dosage: 210 MILLIGRAM, QMO ^ 12 DOSES^
     Route: 058
     Dates: end: 20240327

REACTIONS (3)
  - Leukopenia [Not Recovered/Not Resolved]
  - Therapeutic response unexpected [Unknown]
  - Injection site pain [Unknown]
